FAERS Safety Report 5391683-0 (Version None)
Quarter: 2007Q3

REPORT INFORMATION
  Report Type: 
  Country: None (occurrence: None)
  Receive Date: 20070717
  Receipt Date: 20070702
  Transmission Date: 20080115
  Serious: Yes (Death)
  Sender: FDA-Public Use
  Company Number: S07-UKI-02981-01

PATIENT
  Age: 38 Year
  Sex: Male

DRUGS (6)
  1. CITALOPRAM HYDROBROMIDE [Suspect]
     Indication: ANXIETY
     Dosage: 40 MG QD PO
     Route: 048
  2. CITALOPRAM HYDROBROMIDE [Suspect]
     Indication: DEPRESSION
     Dosage: 40 MG QD PO
     Route: 048
  3. CITALOPRAM HYDROBROMIDE [Suspect]
     Indication: PANIC DISORDER
     Dosage: 40 MG QD PO
     Route: 048
  4. ALCOHOL [Concomitant]
  5. RISPERIDONE [Concomitant]
  6. VALPROATE SODIUM [Concomitant]

REACTIONS (2)
  - ALCOHOL USE [None]
  - DRUG TOXICITY [None]
